FAERS Safety Report 12802002 (Version 1)
Quarter: 2016Q3

REPORT INFORMATION
  Report Type: Spontaneous
  Country: US (occurrence: US)
  Receive Date: 20160930
  Receipt Date: 20160930
  Transmission Date: 20161109
  Serious: Yes (Disabling, Other)
  Sender: FDA-Public Use
  Company Number: None

PATIENT
  Age: 86 Year
  Sex: Male
  Weight: 70.82 kg

DRUGS (12)
  1. RIVASTIGMINE TRANSDERMAL SYSTEM [Suspect]
     Active Substance: RIVASTIGMINE
     Indication: DEMENTIA
     Dosage: 9.5MG/24 HOURS DAILY TRANSDERMAL PATCH DAILY SKIN
     Route: 062
     Dates: start: 20151221, end: 20160926
  2. K-DUR [Concomitant]
     Active Substance: POTASSIUM CHLORIDE
  3. COREG [Concomitant]
     Active Substance: CARVEDILOL
  4. MULTIVITAMINS [Concomitant]
     Active Substance: VITAMINS
  5. DESYREL [Concomitant]
     Active Substance: TRAZODONE HYDROCHLORIDE
  6. TYLENOL [Concomitant]
     Active Substance: ACETAMINOPHEN
  7. PLAVIX [Concomitant]
     Active Substance: CLOPIDOGREL BISULFATE
  8. PROAMATINE [Concomitant]
     Active Substance: MIDODRINE HYDROCHLORIDE
  9. DIGITEK [Concomitant]
     Active Substance: DIGOXIN
  10. ESTER-C [Concomitant]
     Active Substance: CALCIUM\VITAMINS
  11. LASIX [Concomitant]
     Active Substance: FUROSEMIDE
  12. NEURONTIN [Concomitant]
     Active Substance: GABAPENTIN

REACTIONS (1)
  - Squamous cell carcinoma of skin [None]

NARRATIVE: CASE EVENT DATE: 20160831
